FAERS Safety Report 21374510 (Version 1)
Quarter: 2022Q3

REPORT INFORMATION
  Report Type: Spontaneous
  Country: CH (occurrence: CH)
  Receive Date: 20220926
  Receipt Date: 20220926
  Transmission Date: 20221027
  Serious: Yes (Death)
  Sender: FDA-Public Use
  Company Number: None

PATIENT
  Age: 82 Year
  Sex: Male

DRUGS (17)
  1. METAMIZOLE [Suspect]
     Active Substance: METAMIZOLE
     Indication: Analgesic therapy
     Dosage: METAMIZOLE SOLUTION ORALLY 500 MG ON OCTOBER 23, 2021 AND 500 MG TWICE ON OCTOBER 24, 2021; TOTALLY,
     Route: 048
     Dates: start: 20211023, end: 20211024
  2. AMOXICILLIN\CLAVULANATE POTASSIUM [Suspect]
     Active Substance: AMOXICILLIN\CLAVULANATE POTASSIUM
     Indication: Pneumonia
     Dosage: 3.6 GRAM DAILY; CO-AMOXI MEPHA (AMOXICILLIN / CLAVULANIC ACID) 1.2 G EVERY 8 HOURS INTRAVENOUS APPLI
     Route: 042
     Dates: start: 20211022, end: 20211026
  3. METHOTREXATE SODIUM [Suspect]
     Active Substance: METHOTREXATE SODIUM
     Indication: Rheumatoid arthritis
     Dosage: METOJECT (METHOTREXATE) 10 MG ON OCTOBER 14, 2021 AND 15 MG ON OCTOBER 21, 2021, EACH SUBCUTANEOUS A
     Route: 058
     Dates: start: 20211014, end: 20211021
  4. PANTOPRAZOLE SODIUM [Suspect]
     Active Substance: PANTOPRAZOLE SODIUM
     Indication: Product used for unknown indication
     Dosage: 40 MILLIGRAM DAILY; PANTOPRAZOLE SANDOZ (PANTOPRAZOLE) 40 MG ORAL INTAKE 1-0-0-0 FOR A LONG TIME (ST
     Route: 048
     Dates: end: 20211025
  5. ATORVASTATIN [Suspect]
     Active Substance: ATORVASTATIN
     Indication: Product used for unknown indication
     Dosage: 40 MILLIGRAM DAILY; ATORVASTATIN PFIZER  (ATORVASTATIN) 40 MG ORAL INTAKE 1-0-0-0 FOR A LONG TIME (S
     Route: 048
     Dates: end: 20211025
  6. XARELTO [Suspect]
     Active Substance: RIVAROXABAN
     Indication: Product used for unknown indication
     Dosage: XARELTO (RIVAROXABAN) 15 MG ORAL INTAKE 1-0-0-0 FOR A LONG TIME (START UNKNOWN) UNTIL APRIL 2ND , UN
     Route: 048
     Dates: end: 20211025
  7. ASPIRIN [Suspect]
     Active Substance: ASPIRIN
     Indication: Product used for unknown indication
     Route: 048
     Dates: end: 20211025
  8. DAFALGAN [Concomitant]
     Active Substance: ACETAMINOPHEN
     Indication: Product used for unknown indication
     Route: 048
     Dates: end: 20211031
  9. DAFALGAN [Concomitant]
     Active Substance: ACETAMINOPHEN
     Dosage: DAFALGAN  (PARACETAMOL) ORALE EINNAHME IN RESERVE BEI SCHMERZEN IM VERLAUF WECHSEL AUF INTRAVEN S...
     Route: 042
     Dates: end: 20211031
  10. LISINOPRIL [Concomitant]
     Active Substance: LISINOPRIL
     Indication: Product used for unknown indication
     Dosage: LISITRIL (LISINOPRIL) 5MG 0.5-0-0.5-0 BIS AM 23.10.2021 , UNIT DOSE :   2.5 MG, FREQUENCY TIME : 12
     Route: 048
     Dates: end: 20211023
  11. TORSEMIDE [Concomitant]
     Active Substance: TORSEMIDE
     Indication: Product used for unknown indication
     Dosage: TOREM (TORASEMIDE) 5 MG 1-0-0-0, PAUSED AT HOSPITAL ADMISSION ON OCTOBER 22, 2021 , UNIT DOSE :   5
     Route: 048
     Dates: end: 20211022
  12. CALCIUM\CHOLECALCIFEROL [Concomitant]
     Active Substance: CALCIUM\CHOLECALCIFEROL
     Indication: Product used for unknown indication
     Dosage: CALCIMAGON FORTE (CALCIUM/VITAMIN D3) 1000 MG/800 IE 1-0-0-0 BY 24 OR , UNIT DOSE : 1 DOSAGE FORM ,
     Route: 048
     Dates: end: 20211025
  13. OLODATEROL HYDROCHLORIDE\TIOTROPIUM BROMIDE MONOHYDRATE [Concomitant]
     Active Substance: OLODATEROL HYDROCHLORIDE\TIOTROPIUM BROMIDE MONOHYDRATE
     Indication: Product used for unknown indication
     Route: 055
     Dates: end: 20211022
  14. LEVOTHYROXINE [Concomitant]
     Active Substance: LEVOTHYROXINE
     Indication: Product used for unknown indication
     Route: 048
     Dates: end: 20211025
  15. LEVOTHYROXINE [Concomitant]
     Active Substance: LEVOTHYROXINE
     Dosage: ELTROXIN  (LEVOTHYROXIN) 0.1MG 	1.5-0-0-0 BIS 24. ODER 25.10.2021, DANN WECHSEL AUF INTRAVEN SE A...
     Route: 042
     Dates: start: 20211026, end: 20211031
  16. DIAMOX SEQUELS [Concomitant]
     Active Substance: ACETAZOLAMIDE
     Indication: Product used for unknown indication
     Dosage: DIAMOX (ACETAZOLAMIDE) 250MG 0-0-1-0 UNTIL 24. OR 25.10.2021 , UNIT DOSE :   250 MG, FREQUENCY TIME
     Route: 048
     Dates: end: 20211025
  17. LANTUS [Concomitant]
     Active Substance: INSULIN GLARGINE
     Indication: Product used for unknown indication
     Route: 058
     Dates: end: 20211031

REACTIONS (2)
  - Pancytopenia [Fatal]
  - Agranulocytosis [Fatal]

NARRATIVE: CASE EVENT DATE: 20211026
